FAERS Safety Report 8422079-2 (Version None)
Quarter: 2012Q2

REPORT INFORMATION
  Report Type: 
  Country: None (occurrence: None)
  Receive Date: 20120608
  Receipt Date: 20120528
  Transmission Date: 20120825
  Serious: Yes (Hospitalization, Other)
  Sender: FDA-Public Use
  Company Number: TW-ROCHE-1072137

PATIENT
  Sex: Male

DRUGS (2)
  1. ACTEMRA [Suspect]
     Indication: CASTLEMAN'S DISEASE
     Route: 041
     Dates: start: 20111013
  2. RITUXAN [Concomitant]
     Dosage: DOSAGE IS UNCERTAIN.
     Route: 041
     Dates: start: 20111201

REACTIONS (6)
  - GASTROOESOPHAGEAL REFLUX DISEASE [None]
  - DIEULAFOY'S VASCULAR MALFORMATION [None]
  - HAEMORRHAGE [None]
  - OESOPHAGEAL VARICES HAEMORRHAGE [None]
  - PNEUMONIA KLEBSIELLA [None]
  - PORTAL HYPERTENSIVE GASTROPATHY [None]
